FAERS Safety Report 8437530-1 (Version None)
Quarter: 2012Q2

REPORT INFORMATION
  Report Type: 
  Country: None (occurrence: None)
  Receive Date: 20120614
  Receipt Date: 20120420
  Transmission Date: 20120825
  Serious: No
  Sender: FDA-Public Use
  Company Number: US-AMGEN-USASP2012021961

PATIENT
  Age: 71 Year
  Sex: Female

DRUGS (11)
  1. ALPRAZOLAM [Concomitant]
     Dosage: UNK
  2. PROLIA [Suspect]
     Indication: OSTEOPOROSIS POSTMENOPAUSAL
     Dosage: 60 MG, QMO
     Dates: start: 20110831
  3. ATROPINE [Concomitant]
     Dosage: UNK
  4. NIFEDIPINE [Concomitant]
     Dosage: UNK
  5. SIMVASTATIN [Concomitant]
     Dosage: UNK
  6. CLARINEX [Concomitant]
     Dosage: UNK
  7. LISINOPRIL [Concomitant]
  8. NITROGLYCERIN [Concomitant]
     Dosage: UNK
  9. CALCIUM CARBONATE [Concomitant]
     Dosage: UNK
  10. LISINOPRIL [Concomitant]
     Dosage: UNK
  11. PLAVIX [Concomitant]
     Dosage: UNK

REACTIONS (1)
  - LIBIDO INCREASED [None]
